FAERS Safety Report 4793602-4 (Version None)
Quarter: 2005Q4

REPORT INFORMATION
  Report Type: 
  Country: None (occurrence: None)
  Receive Date: 20051006
  Receipt Date: 20050919
  Transmission Date: 20060501
  Serious: Yes (Death)
  Sender: FDA-Public Use
  Company Number: PAR_0237_2005

PATIENT
  Age: 62 Year

DRUGS (3)
  1. DIAZEPAM [Suspect]
     Dosage: DF PO
     Route: 048
  2. METHADONE HCL [Suspect]
     Dosage: DF PO
     Route: 048
  3. ZOLPIDEM TARTRATE [Suspect]
     Dosage: DF PO
     Route: 048

REACTIONS (2)
  - COMPLETED SUICIDE [None]
  - MULTIPLE DRUG OVERDOSE [None]
